FAERS Safety Report 6839954-2 (Version None)
Quarter: 2010Q2

REPORT INFORMATION
  Report Type: 
  Country: None (occurrence: None)
  Receive Date: 20100629
  Receipt Date: 20100525
  Transmission Date: 20101027
  Serious: No
  Sender: FDA-Public Use
  Company Number: US-WYE-H15388410

PATIENT
  Sex: Female

DRUGS (7)
  1. PRISTIQ [Suspect]
     Dosage: 50 MG 1X PER 1 DAY, ORAL
     Route: 048
     Dates: start: 20100501
  2. CELEBREX [Suspect]
     Indication: ARTHRITIS
     Dosage: 200 MG 1X PER 1 DAY, ORAL
     Route: 048
     Dates: start: 20040101
  3. ASPIRIN [Concomitant]
  4. ACETAMINOPHEN [Concomitant]
  5. HYDROCHLOROTHIAZIDE [Concomitant]
  6. LISINOPRIL [Concomitant]
  7. LOVASTATIN [Concomitant]

REACTIONS (5)
  - DYSURIA [None]
  - FALL [None]
  - HYPOACUSIS [None]
  - INSOMNIA [None]
  - MYALGIA [None]
